FAERS Safety Report 9601211 (Version 1)
Quarter: 2013Q4

REPORT INFORMATION
  Report Type: Spontaneous
  Country: US (occurrence: US)
  Receive Date: 20131005
  Receipt Date: 20131005
  Transmission Date: 20140711
  Serious: Yes (Hospitalization, Other)
  Sender: FDA-Public Use
  Company Number: US-JNJFOC-20130915323

PATIENT
  Age: 4 Decade
  Sex: Female

DRUGS (2)
  1. TYLENOL ANALGESIC UNSPECIFIED [Suspect]
     Route: 048
  2. TYLENOL ANALGESIC UNSPECIFIED [Suspect]
     Indication: TOOTHACHE
     Route: 048

REACTIONS (2)
  - Liver injury [Not Recovered/Not Resolved]
  - Overdose [Unknown]
